FAERS Safety Report 22385077 (Version 1)
Quarter: 2023Q2

REPORT INFORMATION
  Report Type: Spontaneous
  Country: DE (occurrence: DE)
  Receive Date: 20230530
  Receipt Date: 20230530
  Transmission Date: 20230721
  Serious: Yes (Hospitalization, Other)
  Sender: FDA-Public Use
  Company Number: DE-009507513-2303DEU006751

PATIENT
  Age: 51 Year
  Sex: Female
  Weight: 65 kg

DRUGS (3)
  1. KEYTRUDA [Suspect]
     Active Substance: PEMBROLIZUMAB
     Indication: Triple negative breast cancer
     Dosage: 200 MILLIGRAM || Q3W
     Dates: start: 20221027, end: 20221208
  2. CARBOPLATIN [Suspect]
     Active Substance: CARBOPLATIN
     Indication: Triple negative breast cancer
     Dosage: AUC 1.5 (UNITS NOT REPORTED)
     Dates: start: 20221027, end: 20221208
  3. PACLITAXEL [Suspect]
     Active Substance: PACLITAXEL
     Indication: Triple negative breast cancer
     Dosage: 80 (UNITS NOT REPORTED)
     Dates: start: 20221027, end: 20221208

REACTIONS (6)
  - Pneumonia [Recovered/Resolved]
  - Hepatitis [Recovered/Resolved]
  - Facial paresis [Recovering/Resolving]
  - Hyperthyroidism [Recovering/Resolving]
  - Pancytopenia [Unknown]
  - Thyroid disorder [Not Recovered/Not Resolved]

NARRATIVE: CASE EVENT DATE: 20221101
